FAERS Safety Report 4319475-1 (Version None)
Quarter: 2004Q1

REPORT INFORMATION
  Report Type: 
  Country: None (occurrence: None)
  Receive Date: 20040316
  Receipt Date: 20040308
  Transmission Date: 20041129
  Serious: Yes (Death, Life-Threatening)
  Sender: FDA-Public Use
  Company Number: APP200400178

PATIENT
  Age: 62 Year
  Sex: Male
  Weight: 78.8 kg

DRUGS (5)
  1. FLUOROURACIL INJ [Suspect]
     Indication: ANAL CANCER
     Dosage: 1960 MG (CONTINUOUS INFUSION OVER 3 DAYS), INJECTION;
     Dates: start: 20040203, end: 20040205
  2. FLUOROURACIL [Suspect]
  3. MITOMYCIN [Concomitant]
  4. ZOFRAN [Concomitant]
  5. COMPAZINE [Concomitant]

REACTIONS (8)
  - BLOOD CALCIUM INCREASED [None]
  - BLOOD UREA INCREASED [None]
  - ERYTHEMA [None]
  - HAEMOGLOBIN DECREASED [None]
  - MUCOSAL INFLAMMATION [None]
  - NEUTROPENIA [None]
  - RED BLOOD CELL COUNT DECREASED [None]
  - THROMBOCYTOPENIA [None]
